FAERS Safety Report 8807848 (Version 1)
Quarter: 2012Q4

REPORT INFORMATION
  Report Type: 
  Country: JP (occurrence: JP)
  Receive Date: 20120925
  Receipt Date: 20120925
  Transmission Date: 20130627
  Serious: Yes (Disabling)
  Sender: FDA-Public Use
  Company Number: JP-GLAXOSMITHKLINE-B0825574A

PATIENT
  Age: 51 Year
  Sex: Male

DRUGS (4)
  1. LAMICTAL [Suspect]
     Indication: EPILEPSY
     Dosage: 25MG Per day
     Route: 048
     Dates: start: 20120615, end: 20120717
  2. VALERIN [Concomitant]
     Route: 048
  3. EXCEGRAN [Concomitant]
     Route: 048
  4. RIVOTRIL [Concomitant]
     Route: 048

REACTIONS (4)
  - Tongue paralysis [Unknown]
  - Muscle twitching [Recovered/Resolved with Sequelae]
  - Rash [Recovered/Resolved]
  - Skin disorder [Recovered/Resolved]
